FAERS Safety Report 18599090 (Version 1)
Quarter: 2020Q4

REPORT INFORMATION
  Report Type: Spontaneous
  Country: GB (occurrence: GB)
  Receive Date: 20201210
  Receipt Date: 20201210
  Transmission Date: 20210114
  Serious: Yes (Death, Hospitalization)
  Sender: FDA-Public Use
  Company Number: GB-009507513-2012GBR003751

PATIENT
  Age: 80 Year
  Sex: Male
  Weight: 58.8 kg

DRUGS (10)
  1. CIMETIDINE [Concomitant]
     Active Substance: CIMETIDINE
  2. CLOPIDOGREL [Concomitant]
     Active Substance: CLOPIDOGREL BISULFATE
  3. DEMECLOCYCLINE [Concomitant]
     Active Substance: DEMECLOCYCLINE
  4. GAVISCON (ALGINIC ACID (+) ALUMINUM HYDROXIDE (+) MAGNESIUM TRISILICAT [Concomitant]
     Active Substance: ALGINIC ACID\ALUMINUM HYDROXIDE\MAGNESIUM TRISILICATE
  5. SIMVASTATIN. [Concomitant]
     Active Substance: SIMVASTATIN
  6. LANSOPRAZOLE. [Concomitant]
     Active Substance: LANSOPRAZOLE
  7. FINASTERIDE. [Concomitant]
     Active Substance: FINASTERIDE
  8. BISOPROLOL FUMARATE. [Concomitant]
     Active Substance: BISOPROLOL FUMARATE
  9. RISEDRONATE SODIUM. [Concomitant]
     Active Substance: RISEDRONATE SODIUM
  10. PEMBROLIZUMAB. [Suspect]
     Active Substance: PEMBROLIZUMAB
     Indication: SQUAMOUS CELL CARCINOMA OF LUNG
     Dosage: 200 MILLIGRAM
     Route: 042
     Dates: start: 20201016, end: 20201106

REACTIONS (4)
  - Acidosis [Unknown]
  - Gastrointestinal haemorrhage [Unknown]
  - Acute kidney injury [Unknown]
  - Autoimmune nephritis [Fatal]

NARRATIVE: CASE EVENT DATE: 2020
